FAERS Safety Report 5074145-X (Version None)
Quarter: 2006Q3

REPORT INFORMATION
  Report Type: 
  Country: None (occurrence: None)
  Receive Date: 20060808
  Receipt Date: 20060622
  Transmission Date: 20061208
  Serious: Yes (Hospitalization)
  Sender: FDA-Public Use
  Company Number: PHBS2006JP09323

PATIENT
  Age: 83 Year
  Sex: Female

DRUGS (10)
  1. FASTIC [Suspect]
     Indication: DIABETES MELLITUS
     Dosage: 270 MG/DAY
     Route: 048
     Dates: end: 20060522
  2. ACTONEL [Suspect]
     Indication: OSTEOPOROSIS
     Dosage: 2.5 MG/DAY
     Route: 048
     Dates: end: 20060522
  3. DEPAS [Suspect]
     Indication: INSOMNIA
     Dosage: 0.5 MG/DAY
     Route: 048
     Dates: end: 20060522
  4. PLATIBIT [Concomitant]
     Indication: OSTEOPOROSIS
     Dosage: 1 UG/DAY
     Route: 048
     Dates: end: 20060522
  5. PRORENAL [Suspect]
     Dosage: 15 UG/DAY
     Route: 048
     Dates: end: 20060522
  6. NEUROVITAN [Concomitant]
     Dates: end: 20060522
  7. HORIZON [Concomitant]
     Dates: end: 20060522
  8. TORSEMIDE [Concomitant]
     Dosage: 4 MG, UNK
     Dates: end: 20060522
  9. GLAKAY [Concomitant]
     Indication: OSTEOPOROSIS
     Dosage: 30 MG, UNK
     Dates: end: 20060522
  10. DICLOFENAC SODIUM [Concomitant]

REACTIONS (6)
  - ALANINE AMINOTRANSFERASE INCREASED [None]
  - ANOREXIA [None]
  - ASPARTATE AMINOTRANSFERASE INCREASED [None]
  - BLOOD BILIRUBIN INCREASED [None]
  - JAUNDICE [None]
  - LIVER DISORDER [None]
